FAERS Safety Report 4771394-2 (Version None)
Quarter: 2005Q3

REPORT INFORMATION
  Report Type: 
  Country: None (occurrence: None)
  Receive Date: 20050915
  Receipt Date: 20050830
  Transmission Date: 20060218
  Serious: Yes (Life-Threatening)
  Sender: FDA-Public Use
  Company Number: JP-MERCK-0509USA00113

PATIENT
  Age: 27 Year
  Sex: Female
  Weight: 50 kg

DRUGS (16)
  1. PRIMAXIN [Suspect]
     Indication: BRONCHITIS
     Route: 041
     Dates: start: 20050829, end: 20050829
  2. BISOLVON [Concomitant]
     Indication: SPUTUM RETENTION
     Route: 041
     Dates: start: 20050824, end: 20050829
  3. METILON [Concomitant]
     Indication: ANTIPYRESIS
     Route: 030
     Dates: start: 20050829, end: 20050901
  4. TRANSAMIN [Concomitant]
     Indication: PHARYNGITIS
     Route: 041
     Dates: start: 20050829, end: 20050829
  5. SODIUM CHLORIDE [Concomitant]
     Indication: BRONCHITIS
     Route: 042
     Dates: start: 20050829
  6. SULPERAZON [Concomitant]
     Indication: BRONCHITIS
     Route: 041
     Dates: start: 20050824, end: 20050828
  7. SULPERAZON [Concomitant]
     Route: 042
     Dates: start: 20050827, end: 20050828
  8. MEIACT [Concomitant]
     Indication: BRONCHITIS
     Route: 048
     Dates: start: 20050820, end: 20050829
  9. AMINOPHYLLINE [Concomitant]
     Indication: COUGH
     Route: 041
     Dates: start: 20050824, end: 20050828
  10. DASEN [Concomitant]
     Indication: SPUTUM RETENTION
     Route: 048
     Dates: start: 20050820, end: 20050829
  11. MUCOSOLVAN [Concomitant]
     Indication: SPUTUM RETENTION
     Route: 048
     Dates: start: 20050824, end: 20050904
  12. UNIPHYL [Concomitant]
     Indication: COUGH
     Route: 048
     Dates: start: 20050824, end: 20050904
  13. SEKICODE [Concomitant]
     Indication: COUGH
     Route: 048
     Dates: start: 20050824, end: 20050829
  14. HOKUNALIN [Concomitant]
     Indication: COUGH
     Route: 048
     Dates: start: 20050824, end: 20050829
  15. CREMIN [Concomitant]
     Indication: RHINITIS
     Route: 048
     Dates: start: 20050820, end: 20050831
  16. SODIUM GUALENATE [Concomitant]
     Indication: RHINITIS
     Route: 048
     Dates: start: 20050824, end: 20050831

REACTIONS (2)
  - BLOOD PRESSURE DECREASED [None]
  - FEELING ABNORMAL [None]
